FAERS Safety Report 11252212 (Version 2)
Quarter: 2015Q3

REPORT INFORMATION
  Report Type: Spontaneous
  Country: US (occurrence: US)
  Receive Date: 20150708
  Receipt Date: 20150803
  Transmission Date: 20151125
  Serious: No
  Sender: FDA-Public Use
  Company Number: US-ELI_LILLY_AND_COMPANY-US201304008071

PATIENT
  Age: 38 Year
  Sex: Male
  Weight: 144 kg

DRUGS (1)
  1. ZYPREXA RELPREVV [Suspect]
     Active Substance: OLANZAPINE PAMOATE
     Indication: SCHIZOPHRENIA
     Dosage: 405 MG, PER MONTH
     Route: 030
     Dates: start: 20130417

REACTIONS (1)
  - Alcoholism [Recovered/Resolved]

NARRATIVE: CASE EVENT DATE: 20130422
